FAERS Safety Report 9622464 (Version 2)
Quarter: 2013Q4

REPORT INFORMATION
  Report Type: Spontaneous
  Country: US (occurrence: US)
  Receive Date: 20131015
  Receipt Date: 20131015
  Transmission Date: 20140711
  Serious: No
  Sender: FDA-Public Use
  Company Number: US-PURDUE-USA-2012-0085772

PATIENT
  Sex: Female
  Weight: 63.49 kg

DRUGS (1)
  1. BUTRANS [Suspect]
     Indication: PRODUCT USED FOR UNKNOWN INDICATION
     Dosage: 10 MCG/HR, UNK
     Route: 062
     Dates: start: 20120315, end: 20120401

REACTIONS (6)
  - Application site odour [Unknown]
  - Application site pruritus [Unknown]
  - Application site pain [Unknown]
  - Pain [Unknown]
  - Application site discharge [Unknown]
  - Application site urticaria [Unknown]
